FAERS Safety Report 7703241-0 (Version None)
Quarter: 2011Q3

REPORT INFORMATION
  Report Type: 
  Country: None (occurrence: None)
  Receive Date: 20110823
  Receipt Date: 20110809
  Transmission Date: 20111222
  Serious: No
  Sender: FDA-Public Use
  Company Number: US-B.I. PHARMACEUTICALS,INC./RIDGEFIELD-2011-BP-16775BP

PATIENT
  Sex: Female
  Weight: 79.37 kg

DRUGS (8)
  1. DIGOXIN [Concomitant]
     Indication: CARDIAC DISORDER
     Dosage: 0.125 NR
     Route: 048
  2. ALBUTEROL INHALER [Concomitant]
  3. CRESTOR [Concomitant]
     Indication: BLOOD CHOLESTEROL INCREASED
     Dosage: 20 MG
     Route: 048
  4. ALENDRONATE SODIUM [Concomitant]
     Dosage: 70 MG
  5. PRADAXA [Suspect]
     Indication: ATRIAL FIBRILLATION
     Dosage: 300 MG
     Route: 048
     Dates: start: 20110530, end: 20110627
  6. COUMADIN [Concomitant]
     Indication: CARDIAC DISORDER
     Route: 048
  7. DILTIAZEM CD [Concomitant]
     Dosage: 120 MG
  8. CARDIZEM [Concomitant]
     Indication: CARDIAC DISORDER
     Route: 048

REACTIONS (5)
  - FLANK PAIN [None]
  - BURNING SENSATION [None]
  - BACK PAIN [None]
  - NAUSEA [None]
  - VOMITING [None]
